FAERS Safety Report 4621370-5 (Version None)
Quarter: 2005Q1

REPORT INFORMATION
  Report Type: 
  Country: None (occurrence: None)
  Receive Date: 20050325
  Receipt Date: 20050314
  Transmission Date: 20050727
  Serious: Yes (Other)
  Sender: FDA-Public Use
  Company Number: B0374511A

PATIENT
  Age: 40 Year
  Sex: Male

DRUGS (3)
  1. MYLERAN [Suspect]
  2. FLUDARABINE PHOSPHATE [Suspect]
  3. ALEMTUZUMAB (FORMULATION UNKNOWN)  (ALEMTUZUMAB) [Suspect]

REACTIONS (1)
  - ANAEMIA HAEMOLYTIC AUTOIMMUNE [None]
